FAERS Safety Report 15237477 (Version 1)
Quarter: 2018Q3

REPORT INFORMATION
  Report Type: Spontaneous
  Country: KR (occurrence: KR)
  Receive Date: 20180803
  Receipt Date: 20180803
  Transmission Date: 20181010
  Serious: Yes (Hospitalization, Other)
  Sender: FDA-Public Use
  Company Number: PHHY2018KR058104

PATIENT
  Age: 62 Year
  Sex: Male
  Weight: 65.4 kg

DRUGS (4)
  1. EVEROLIMUS. [Suspect]
     Active Substance: EVEROLIMUS
     Dosage: 5 MG, QD
     Route: 048
     Dates: start: 20180105, end: 20180702
  2. LENVATINIB [Suspect]
     Active Substance: LENVATINIB
     Dosage: 14 MG, QD
     Route: 048
     Dates: start: 20180105, end: 20180702
  3. LENVATINIB [Suspect]
     Active Substance: LENVATINIB
     Indication: RENAL CELL CARCINOMA
     Dosage: 18 MG, QD
     Route: 048
     Dates: start: 20171215, end: 20171226
  4. EVEROLIMUS. [Suspect]
     Active Substance: EVEROLIMUS
     Indication: RENAL CELL CARCINOMA
     Dosage: 5 MG, QD
     Route: 048
     Dates: start: 20171215, end: 20171226

REACTIONS (19)
  - Lipase increased [Recovering/Resolving]
  - Blood creatinine increased [Recovering/Resolving]
  - Biliary sepsis [Recovering/Resolving]
  - White blood cell count increased [Recovering/Resolving]
  - Diarrhoea [Recovering/Resolving]
  - Septic shock [Recovering/Resolving]
  - Bacteraemia [Recovering/Resolving]
  - Anal abscess [Recovered/Resolved]
  - Hypotension [Recovering/Resolving]
  - Blood urea increased [Recovering/Resolving]
  - Pyrexia [Recovering/Resolving]
  - Infection [Recovered/Resolved]
  - Anal ulcer [Recovering/Resolving]
  - Procalcitonin increased [Recovering/Resolving]
  - Citrobacter test positive [Recovering/Resolving]
  - Klebsiella test positive [Recovering/Resolving]
  - Haemoglobin decreased [Recovering/Resolving]
  - Acute kidney injury [Recovering/Resolving]
  - C-reactive protein increased [Recovering/Resolving]

NARRATIVE: CASE EVENT DATE: 20180611
